FAERS Safety Report 8140561-2 (Version None)
Quarter: 2012Q1

REPORT INFORMATION
  Report Type: 
  Country: None (occurrence: None)
  Receive Date: 20120216
  Receipt Date: 20120209
  Transmission Date: 20120608
  Serious: Yes (Other)
  Sender: FDA-Public Use
  Company Number: JP-PFIZER INC-2012002477

PATIENT
  Age: 84 Year
  Sex: Female

DRUGS (1)
  1. NEO-MEDROL [Suspect]
     Dosage: UNK
     Route: 047
     Dates: start: 20111227

REACTIONS (1)
  - DEAFNESS [None]
